FAERS Safety Report 8630207 (Version 2)
Quarter: 2012Q4

REPORT INFORMATION
  Report Type: 
  Country: FR (occurrence: FR)
  Receive Date: 20120622
  Receipt Date: 20121101
  Transmission Date: 20130627
  Serious: Yes (Death, Life-Threatening)
  Sender: FDA-Public Use
  Company Number: FR-PFIZER INC-2012146847

PATIENT
  Age: 77 Year
  Sex: Male

DRUGS (8)
  1. TAHOR [Suspect]
     Indication: DYSLIPIDEMIA
     Dosage: 10 mg, 1x/day
     Route: 048
  2. XELEVIA [Suspect]
     Indication: NIDDM
     Dosage: 100 mg, 1x/day
     Route: 048
  3. LEXOMIL [Suspect]
     Indication: ANXIETY
     Dosage: 6 mg, 1x/day
     Route: 048
  4. IXPRIM [Suspect]
     Indication: PAIN
     Dosage: unk, if pain
     Route: 048
     Dates: start: 201111
  5. COAPROVEL [Suspect]
     Indication: HYPERTENSION ARTERIAL
     Dosage: hydrochlorothiazide/ irbesartan 300/12/5 mg 1x/day
     Route: 048
  6. AMAREL [Suspect]
     Indication: NIDDM
     Dosage: 4 mg, 1x/day
     Route: 048
  7. GLUCOPHAGE [Suspect]
     Indication: NIDDM
     Dosage: 1000 mg, 1x/day
     Route: 048
  8. OMEPRAZOLE [Suspect]
     Indication: GASTROESOPHAGEAL REFLUX
     Dosage: 20 mg, 1x/day
     Route: 048

REACTIONS (1)
  - Pancreatic carcinoma [Fatal]
